FAERS Safety Report 5654812-7 (Version None)
Quarter: 2008Q1

REPORT INFORMATION
  Report Type: 
  Country: None (occurrence: None)
  Receive Date: 20080307
  Receipt Date: 20070724
  Transmission Date: 20080703
  Serious: No
  Sender: FDA-Public Use
  Company Number: A0666073A

PATIENT
  Age: 67 Year
  Sex: Female

DRUGS (3)
  1. REQUIP [Suspect]
     Indication: BURNING SENSATION
     Dosage: .5MG PER DAY
     Route: 048
     Dates: start: 20070723, end: 20070723
  2. UNSPECIFIED MEDICATIONS [Concomitant]
  3. HEMODIALYSIS [Concomitant]

REACTIONS (6)
  - BALANCE DISORDER [None]
  - DIZZINESS [None]
  - FALL [None]
  - OVERDOSE [None]
  - PAIN [None]
  - SWELLING FACE [None]
